FAERS Safety Report 9538857 (Version 1)
Quarter: 2013Q3

REPORT INFORMATION
  Report Type: Report from Study
  Country: CA (occurrence: CA)
  Receive Date: 20130920
  Receipt Date: 20130920
  Transmission Date: 20140515
  Serious: Yes (Other)
  Sender: FDA-Public Use
  Company Number: CA-JNJFOC-20130908739

PATIENT
  Age: 63 Year
  Sex: Male
  Weight: 86.4 kg

DRUGS (2)
  1. REMICADE [Suspect]
     Indication: CROHN^S DISEASE
     Route: 042
     Dates: start: 201011
  2. PARIET [Concomitant]
     Route: 065

REACTIONS (1)
  - Nerve compression [Unknown]
